FAERS Safety Report 22953673 (Version 2)
Quarter: 2023Q4

REPORT INFORMATION
  Report Type: Spontaneous
  Country: FR (occurrence: FR)
  Receive Date: 20230918
  Receipt Date: 20231005
  Transmission Date: 20240110
  Serious: Yes (Hospitalization)
  Sender: FDA-Public Use
  Company Number: None

PATIENT
  Age: 98 Year
  Sex: Female

DRUGS (8)
  1. VENLAFAXINE [Suspect]
     Active Substance: VENLAFAXINE HYDROCHLORIDE
     Indication: Wrong patient
     Dates: start: 20230806, end: 20230806
  2. TRAMADOL [Suspect]
     Active Substance: TRAMADOL\TRAMADOL HYDROCHLORIDE
     Indication: Wrong patient
     Dates: start: 20230806, end: 20230806
  3. RISPERIDONE [Suspect]
     Active Substance: RISPERIDONE
     Indication: Wrong patient
     Dates: start: 20230806, end: 20230806
  4. BISOPROLOL [Suspect]
     Active Substance: BISOPROLOL\BISOPROLOL FUMARATE
     Indication: Wrong patient
     Dosage: BISOCE 5 MG, FILM-COATED TABLET
     Dates: start: 20230806, end: 20230806
  5. XANAX [Concomitant]
     Active Substance: ALPRAZOLAM
     Indication: Wrong patient
     Dosage: XANAX 0.50 MG, SCORED TABLET
     Dates: start: 20230806, end: 20230806
  6. FOLIC ACID [Concomitant]
     Active Substance: FOLIC ACID
     Indication: Wrong patient
     Dates: start: 20230806, end: 20230806
  7. LEVETIRACETAM [Concomitant]
     Active Substance: LEVETIRACETAM
     Indication: Wrong patient
     Dates: start: 20230806, end: 20230806
  8. PANTOPRAZOLE [Concomitant]
     Active Substance: PANTOPRAZOLE
     Indication: Wrong patient
     Dates: start: 20230806, end: 20230806

REACTIONS (3)
  - Hypotension [Recovered/Resolved]
  - Bradycardia [Recovered/Resolved]
  - Wrong patient [Recovered/Resolved]

NARRATIVE: CASE EVENT DATE: 20230806
